FAERS Safety Report 20555824 (Version 1)
Quarter: 2022Q1

REPORT INFORMATION
  Report Type: Spontaneous
  Country: US (occurrence: US)
  Receive Date: 20220304
  Receipt Date: 20220304
  Transmission Date: 20220423
  Serious: Yes (Other)
  Sender: FDA-Public Use
  Company Number: US-PURDUE-USA-2020-0284009

PATIENT
  Sex: Female

DRUGS (11)
  1. OXYCONTIN [Suspect]
     Active Substance: OXYCODONE HYDROCHLORIDE
     Indication: Back disorder
     Dosage: UNK
     Route: 048
     Dates: start: 2001
  2. BUTRANS [Suspect]
     Active Substance: BUPRENORPHINE
     Indication: Back disorder
     Dosage: UNK
     Route: 062
     Dates: start: 2001
  3. DILAUDID [Suspect]
     Active Substance: HYDROMORPHONE HYDROCHLORIDE
     Indication: Back disorder
     Dosage: UNK
     Route: 048
     Dates: start: 2001
  4. MS CONTIN [Suspect]
     Active Substance: MORPHINE SULFATE
     Indication: Back disorder
     Dosage: UNK
     Route: 048
     Dates: start: 2001
  5. BUPRENORPHINE [Suspect]
     Active Substance: BUPRENORPHINE
     Indication: Back disorder
     Dosage: UNK
     Route: 062
     Dates: start: 2001
  6. HYDROMORPHONE [Suspect]
     Active Substance: HYDROMORPHONE
     Indication: Back disorder
     Dosage: UNK
     Route: 048
     Dates: start: 2001
  7. MORPHINE SULFATE [Suspect]
     Active Substance: MORPHINE SULFATE
     Indication: Back disorder
     Dosage: UNK
     Route: 048
     Dates: start: 2001
  8. OXYCODONE HYDROCHLORIDE [Suspect]
     Active Substance: OXYCODONE HYDROCHLORIDE
     Indication: Back disorder
     Dosage: UNK
     Route: 048
     Dates: start: 2001
  9. ACETAMINOPHEN\OXYCODONE HYDROCHLORIDE [Suspect]
     Active Substance: ACETAMINOPHEN\OXYCODONE HYDROCHLORIDE
     Indication: Back disorder
     Dosage: UNK
     Route: 048
     Dates: start: 2001
  10. OXYCODONE HYDROCHLORIDE [Suspect]
     Active Substance: OXYCODONE HYDROCHLORIDE
     Indication: Back disorder
     Dosage: UNK
     Route: 065
     Dates: start: 2001
  11. RYZOLT [Suspect]
     Active Substance: TRAMADOL HYDROCHLORIDE
     Indication: Back disorder
     Dosage: UNK
     Route: 048
     Dates: start: 2001

REACTIONS (3)
  - Drug dependence [Unknown]
  - Paranoia [Unknown]
  - Drug withdrawal syndrome [Unknown]
